FAERS Safety Report 20914381 (Version 2)
Quarter: 2022Q2

REPORT INFORMATION
  Report Type: Spontaneous
  Country: US (occurrence: US)
  Receive Date: 20220604
  Receipt Date: 20220604
  Transmission Date: 20220721
  Serious: No
  Sender: FDA-Public Use
  Company Number: US-SA-SAC20220523000689

PATIENT
  Age: 70 Year
  Sex: Female

DRUGS (1)
  1. DUPIXENT [Suspect]
     Active Substance: DUPILUMAB
     Indication: Asthma
     Dosage: 300MG QOW
     Route: 058
     Dates: start: 202203

REACTIONS (5)
  - Injection site rash [Unknown]
  - Oral pain [Not Recovered/Not Resolved]
  - Glossodynia [Unknown]
  - Mouth ulceration [Unknown]
  - Gingival pain [Unknown]

NARRATIVE: CASE EVENT DATE: 20220101
